FAERS Safety Report 5309348-X (Version None)
Quarter: 2007Q2

REPORT INFORMATION
  Report Type: 
  Country: None (occurrence: None)
  Receive Date: 20070427
  Receipt Date: 20070416
  Transmission Date: 20071010
  Serious: Yes (Other)
  Sender: FDA-Public Use
  Company Number: PHRM2007FR00808

PATIENT
  Age: 79 Year
  Sex: Female
  Weight: 43 kg

DRUGS (5)
  1. NISIS [Suspect]
     Indication: HYPERTENSION
     Dosage: 160 MG, QD
     Route: 048
     Dates: start: 20050101
  2. CORDARONE [Concomitant]
     Dosage: 100 MG
     Route: 048
  3. HYPERIUM [Concomitant]
     Dosage: 2 MG
     Route: 048
  4. DAFALGAN [Concomitant]
     Dosage: 1500 MG
     Route: 048
  5. ESOMEPRAZOLE MAGNESIUM [Concomitant]

REACTIONS (8)
  - BLOOD IRON DECREASED [None]
  - GASTRITIS ATROPHIC [None]
  - GASTROINTESTINAL HAEMORRHAGE [None]
  - HAEMATOCRIT DECREASED [None]
  - HAEMOGLOBIN DECREASED [None]
  - IRON DEFICIENCY ANAEMIA [None]
  - RED BLOOD CELL COUNT DECREASED [None]
  - SERUM FERRITIN DECREASED [None]
